FAERS Safety Report 5484947-3 (Version None)
Quarter: 2007Q4

REPORT INFORMATION
  Report Type: 
  Country: None (occurrence: None)
  Receive Date: 20071011
  Receipt Date: 20070926
  Transmission Date: 20080405
  Serious: Yes (Hospitalization)
  Sender: FDA-Public Use
  Company Number: 2007001808

PATIENT
  Age: 65 Year
  Sex: Male

DRUGS (7)
  1. TARCEVA [Suspect]
     Indication: PANCREATIC CARCINOMA
     Dosage: (100 MG), ORAL
     Route: 048
     Dates: start: 20070821
  2. OXAZEPAM [Concomitant]
  3. WELLBUTRIN [Concomitant]
  4. TRIAZOLAM [Concomitant]
  5. LANSOPRAZOLE [Concomitant]
  6. DESLORATADINE [Concomitant]
  7. GEMCITABINE [Concomitant]

REACTIONS (5)
  - BLOOD GLUCOSE INCREASED [None]
  - FUNGAL INFECTION [None]
  - PNEUMONIA [None]
  - PULMONARY MASS [None]
  - TRANSIENT ISCHAEMIC ATTACK [None]
